FAERS Safety Report 10701001 (Version 2)
Quarter: 2016Q2

REPORT INFORMATION
  Report Type: Spontaneous
  Country: EC (occurrence: EC)
  Receive Date: 20150109
  Receipt Date: 20160519
  Transmission Date: 20160815
  Serious: Yes (Other)
  Sender: FDA-Public Use
  Company Number: EC-PFIZER INC-2015008727

PATIENT
  Age: 86 Year
  Sex: Male

DRUGS (1)
  1. NEURONTIN [Suspect]
     Active Substance: GABAPENTIN
     Dosage: 300 MG, 3X/DAY
     Dates: start: 2013

REACTIONS (7)
  - Abasia [Unknown]
  - Somnolence [Recovered/Resolved]
  - Drug ineffective [Unknown]
  - Hypoacusis [Not Recovered/Not Resolved]
  - Herpes zoster [Recovered/Resolved]
  - Amnesia [Unknown]
  - Eye swelling [Unknown]

NARRATIVE: CASE EVENT DATE: 201403
